FAERS Safety Report 6059799-3 (Version None)
Quarter: 2009Q1

REPORT INFORMATION
  Report Type: 
  Country: None (occurrence: None)
  Receive Date: 20090130
  Receipt Date: 20080709
  Transmission Date: 20090719
  Serious: No
  Sender: FDA-Public Use
  Company Number: US-ABBOTT-08P-163-0461634-00

PATIENT
  Sex: Female
  Weight: 97.72 kg

DRUGS (4)
  1. LUPRON DEPOT [Suspect]
     Indication: MENORRHAGIA
     Route: 030
     Dates: start: 20080601
  2. IBUPROFEN TABLETS [Concomitant]
     Indication: PAIN
     Route: 048
  3. IRON [Concomitant]
     Indication: DRUG USE FOR UNKNOWN INDICATION
     Route: 048
  4. VICODIN [Concomitant]
     Indication: PAIN
     Route: 048

REACTIONS (1)
  - MENORRHAGIA [None]
